FAERS Safety Report 6137587-7 (Version None)
Quarter: 2009Q1

REPORT INFORMATION
  Report Type: 
  Country: None (occurrence: None)
  Receive Date: 20090331
  Receipt Date: 20090323
  Transmission Date: 20090719
  Serious: Yes (Hospitalization)
  Sender: FDA-Public Use
  Company Number: PHHY2009CL10991

PATIENT
  Age: 31 Year
  Sex: Female

DRUGS (1)
  1. LEPONEX [Suspect]
     Indication: BIPOLAR DISORDER
     Dosage: 150 MG PER DAY
     Dates: start: 20050101

REACTIONS (3)
  - CHOLECYSTITIS [None]
  - CHOLELITHIASIS [None]
  - SURGERY [None]
